FAERS Safety Report 5811968-0 (Version None)
Quarter: 2008Q3

REPORT INFORMATION
  Report Type: 
  Country: None (occurrence: None)
  Receive Date: 20080714
  Receipt Date: 20080707
  Transmission Date: 20090109
  Serious: Yes (Death)
  Sender: FDA-Public Use
  Company Number: 19622

PATIENT
  Sex: Male

DRUGS (7)
  1. PACLITAXEL [Suspect]
     Indication: EXTRAGONADAL PRIMARY NON-SEMINOMA
     Dosage: 175 MG/M2 PER_CYCLE; OTHER
  2. ETOPOSIDE [Suspect]
     Indication: EXTRAGONADAL PRIMARY NON-SEMINOMA
     Dosage: 100 MG/M2 PER_CYCLE;
  3. CISPLATIN [Suspect]
     Indication: EXTRAGONADAL PRIMARY NON-SEMINOMA
     Dosage: 20 MG/M2 PER_CYCLE;
  4. BLEOMYCIN SULFATE [Suspect]
     Indication: EXTRAGONADAL PRIMARY NON-SEMINOMA
     Dosage: 30 MG/M2 PER_CYCLE;
  5. DEXAMETHASONE [Concomitant]
  6. BISULEPIN HCL [Concomitant]
  7. RANITIDINE HCL [Concomitant]

REACTIONS (3)
  - FEBRILE NEUTROPENIA [None]
  - MEGACOLON [None]
  - SEPTIC SHOCK [None]
